FAERS Safety Report 16234404 (Version 2)
Quarter: 2019Q3

REPORT INFORMATION
  Report Type: Spontaneous
  Country: US (occurrence: US)
  Receive Date: 20190424
  Receipt Date: 20190709
  Transmission Date: 20191004
  Serious: No
  Sender: FDA-Public Use
  Company Number: US-CELGENEUS-USA-20190407095

PATIENT
  Age: 60 Year
  Sex: Female

DRUGS (3)
  1. OTEZLA [Suspect]
     Active Substance: APREMILAST
     Indication: PSORIATIC ARTHROPATHY
  2. BABY ASPIRIN [Concomitant]
     Active Substance: ASPIRIN
     Indication: BACK PAIN
     Route: 065
  3. OTEZLA [Suspect]
     Active Substance: APREMILAST
     Indication: PSORIASIS
     Dosage: 60 MILLIGRAM
     Route: 048
     Dates: start: 20190404

REACTIONS (4)
  - Influenza like illness [Recovered/Resolved]
  - Muscular weakness [Unknown]
  - Back pain [Unknown]
  - Faeces soft [Unknown]

NARRATIVE: CASE EVENT DATE: 20190411
